FAERS Safety Report 9570426 (Version 1)
Quarter: 2013Q3

REPORT INFORMATION
  Report Type: Spontaneous
  Country: US (occurrence: None)
  Receive Date: 20130926
  Receipt Date: 20130926
  Transmission Date: 20140515
  Serious: Yes (Disabling)
  Sender: FDA-Public Use
  Company Number: None

PATIENT
  Age: 77 Year
  Sex: Female
  Weight: 94.8 kg

DRUGS (1)
  1. ATORVASTATIN [Suspect]
     Dosage: 1 TAB, ONCE DAILY, TAKEN BY MOUTH
     Route: 048
     Dates: start: 20130720, end: 20130920

REACTIONS (2)
  - Abasia [None]
  - Mobility decreased [None]
